FAERS Safety Report 14057078 (Version 2)
Quarter: 2017Q4

REPORT INFORMATION
  Report Type: Spontaneous
  Country: FR (occurrence: FR)
  Receive Date: 20171006
  Receipt Date: 20171010
  Transmission Date: 20180321
  Serious: Yes (Other)
  Sender: FDA-Public Use
  Company Number: FR-MERCK KGAA-2029064

PATIENT
  Age: 27 Year
  Sex: Female

DRUGS (2)
  1. LEVOTHYROXINE SODIUM. [Suspect]
     Active Substance: LEVOTHYROXINE SODIUM
  2. NOVOTHYROX [Suspect]
     Active Substance: LEVOTHYROXINE SODIUM
     Indication: PRODUCT USED FOR UNKNOWN INDICATION
     Dates: start: 201705

REACTIONS (9)
  - Abdominal pain [Unknown]
  - Migraine [Not Recovered/Not Resolved]
  - Fatigue [Unknown]
  - Alopecia [Not Recovered/Not Resolved]
  - Bleeding time prolonged [Unknown]
  - Affective disorder [Unknown]
  - Haemorrhage [Recovered/Resolved]
  - Weight increased [Not Recovered/Not Resolved]
  - Irritability [Not Recovered/Not Resolved]

NARRATIVE: CASE EVENT DATE: 20170826
